FAERS Safety Report 12533524 (Version 1)
Quarter: 2016Q3

REPORT INFORMATION
  Report Type: Other
  Country: US (occurrence: US)
  Receive Date: 20160706
  Receipt Date: 20160706
  Transmission Date: 20161109
  Serious: Yes (Hospitalization)
  Sender: FDA-Public Use
  Company Number: US-PURDUE PHARMA-DEU-2016-0018124

PATIENT
  Age: 63 Year
  Sex: Male

DRUGS (1)
  1. MORPHINE SULFATE (SIMILAR TO NDA 19-516) [Suspect]
     Active Substance: MORPHINE SULFATE
     Indication: PRODUCT USED FOR UNKNOWN INDICATION
     Route: 065

REACTIONS (7)
  - Pneumonia aspiration [Recovered/Resolved]
  - Loss of consciousness [Recovered/Resolved]
  - Overdose [Recovered/Resolved]
  - Leukoencephalopathy [Recovering/Resolving]
  - Mental status changes [Recovering/Resolving]
  - Acute kidney injury [Unknown]
  - Hypopnoea [Recovered/Resolved]
